FAERS Safety Report 6186527-3 (Version None)
Quarter: 2009Q2

REPORT INFORMATION
  Report Type: 
  Country: None (occurrence: None)
  Receive Date: 20090507
  Receipt Date: 20090507
  Transmission Date: 20091009
  Serious: No
  Sender: FDA-Public Use
  Company Number: None

PATIENT
  Sex: Female
  Weight: 53.5244 kg

DRUGS (1)
  1. CYMBALTA [Suspect]
     Dosage: 30 MG 1 DAILY
     Dates: start: 20090413, end: 20090429

REACTIONS (5)
  - ASTHENIA [None]
  - DIZZINESS [None]
  - DRUG WITHDRAWAL SYNDROME [None]
  - FATIGUE [None]
  - WEIGHT INCREASED [None]
